FAERS Safety Report 9009294 (Version 1)
Quarter: 2013Q1

REPORT INFORMATION
  Report Type: Spontaneous
  Country: GB (occurrence: GB)
  Receive Date: 20130111
  Receipt Date: 20130111
  Transmission Date: 20140127
  Serious: Yes (Hospitalization)
  Sender: FDA-Public Use
  Company Number: GB-EISAI INC-E2080-00586-SPO-GB

PATIENT
  Age: 4 Year
  Sex: Male
  Weight: 20.1 kg

DRUGS (3)
  1. RUFINAMIDE [Suspect]
     Indication: EPILEPSY
     Dosage: UNKNOWN
     Route: 048
     Dates: start: 20121101, end: 20121202
  2. CLOBAZAM [Concomitant]
  3. EPILIM CHRONOSPHERE [Concomitant]

REACTIONS (1)
  - Stevens-Johnson syndrome [Recovered/Resolved]
